FAERS Safety Report 4685802-9 (Version None)
Quarter: 2005Q2

REPORT INFORMATION
  Report Type: 
  Country: None (occurrence: None)
  Receive Date: 20050606
  Receipt Date: 20050606
  Transmission Date: 20051028
  Serious: Yes (Hospitalization)
  Sender: FDA-Public Use
  Company Number: None

PATIENT
  Age: 55 Year
  Sex: Female
  Weight: 62.1428 kg

DRUGS (4)
  1. PACLITAXEL [Suspect]
     Indication: BREAST CANCER
     Dosage: 282 MG IV Q 2 WKS
     Route: 042
     Dates: start: 20050302
  2. PACLITAXEL [Suspect]
     Indication: BREAST CANCER
     Dosage: 282 MG IV Q 2 WKS
     Route: 042
     Dates: start: 20050316
  3. PACLITAXEL [Suspect]
     Indication: BREAST CANCER
     Dosage: 282 MG IV Q 2 WKS
     Route: 042
     Dates: start: 20050330
  4. PACLITAXEL [Suspect]
     Indication: BREAST CANCER
     Dosage: 282 MG IV Q 2 WKS
     Route: 042
     Dates: start: 20050413

REACTIONS (3)
  - BLOOD CULTURE POSITIVE [None]
  - CATHETER RELATED INFECTION [None]
  - DIARRHOEA [None]
